FAERS Safety Report 19420301 (Version 1)
Quarter: 2021Q2

REPORT INFORMATION
  Report Type: Spontaneous
  Country: DE (occurrence: DE)
  Receive Date: 20210615
  Receipt Date: 20210615
  Transmission Date: 20210717
  Serious: Yes (Hospitalization, Disabling, Other)
  Sender: FDA-Public Use
  Company Number: DE-TAKEDA-2021TUS035951

PATIENT
  Age: 49 Year
  Sex: Male
  Weight: 85 kg

DRUGS (30)
  1. CYCLOPHOSPHAMID [Suspect]
     Active Substance: CYCLOPHOSPHAMIDE
     Dosage: UNK
     Route: 065
     Dates: start: 20141118, end: 20150407
  2. AMPHOTERICIN [Concomitant]
     Active Substance: AMPHOTERICIN B
     Dosage: 1 DOSAGE FORM, 2.5/DAY
  3. URSOFALK [Suspect]
     Active Substance: URSODIOL
     Indication: DRUG-INDUCED LIVER INJURY
     Dosage: UNK
     Route: 065
     Dates: start: 201602, end: 201603
  4. FLUDARABINE [Suspect]
     Active Substance: FLUDARABINE PHOSPHATE
     Dosage: 49.8 MILLIGRAM
     Route: 042
     Dates: start: 20141216
  5. GAZYVARO [Suspect]
     Active Substance: OBINUTUZUMAB
     Indication: CHRONIC LYMPHOCYTIC LEUKAEMIA
     Dosage: 1000 MILLIGRAM
     Route: 042
     Dates: start: 20150113
  6. GAZYVARO [Suspect]
     Active Substance: OBINUTUZUMAB
     Dosage: 1000 MILLIGRAM
     Route: 042
     Dates: start: 20150310
  7. CIPROFLOXACIN. [Concomitant]
     Active Substance: CIPROFLOXACIN
     Route: 065
  8. PANTOPRAZOL [Concomitant]
     Active Substance: PANTOPRAZOLE SODIUM
  9. KEPPRA [Suspect]
     Active Substance: LEVETIRACETAM
     Indication: EPILEPSY
     Dosage: UNK
     Route: 065
     Dates: start: 20160727, end: 20170710
  10. FLUDARABINE [Suspect]
     Active Substance: FLUDARABINE PHOSPHATE
     Dosage: UNK
     Route: 065
     Dates: start: 20141118, end: 20150407
  11. FLUDARABINE [Suspect]
     Active Substance: FLUDARABINE PHOSPHATE
     Dosage: 49.7 MILLIGRAM
     Route: 042
     Dates: start: 20150310
  12. CYCLOPHOSPHAMID [Suspect]
     Active Substance: CYCLOPHOSPHAMIDE
     Indication: CHRONIC LYMPHOCYTIC LEUKAEMIA
     Dosage: 498 MILLIGRAM
     Route: 042
     Dates: start: 20141216
  13. GAZYVARO [Suspect]
     Active Substance: OBINUTUZUMAB
     Dosage: 100 MILLIGRAM
     Route: 042
     Dates: start: 20141118, end: 20150407
  14. ALLOPURINOL. [Concomitant]
     Active Substance: ALLOPURINOL
     Dosage: 300 MILLIGRAM, QD
     Route: 065
  15. PRIVIGEN [Suspect]
     Active Substance: HUMAN IMMUNOGLOBULIN G
     Indication: CHRONIC LYMPHOCYTIC LEUKAEMIA
     Dosage: 20 GRAM
     Route: 065
     Dates: start: 20160323
  16. CYCLOPHOSPHAMID [Suspect]
     Active Substance: CYCLOPHOSPHAMIDE
     Dosage: 495 MILLIGRAM
     Route: 042
     Dates: start: 20141119
  17. JONOSTERIL [Concomitant]
     Route: 065
  18. KIOVIG [Suspect]
     Active Substance: HUMAN IMMUNOGLOBULIN G
     Indication: IMMUNOGLOBULINS DECREASED
     Route: 065
  19. FLUDARABINE [Suspect]
     Active Substance: FLUDARABINE PHOSPHATE
     Indication: CHRONIC LYMPHOCYTIC LEUKAEMIA
     Dosage: 49.7 MILLIGRAM
     Route: 042
     Dates: start: 20150312
  20. FLUDARABINE [Suspect]
     Active Substance: FLUDARABINE PHOSPHATE
     Dosage: 49.5 MILLIGRAM
     Route: 042
     Dates: start: 20141119
  21. FLUDARABINE [Suspect]
     Active Substance: FLUDARABINE PHOSPHATE
     Dosage: 50 MILLIGRAM
     Route: 042
     Dates: start: 20150113
  22. FLUDARABINE [Suspect]
     Active Substance: FLUDARABINE PHOSPHATE
     Dosage: 50 MILLIGRAM
     Route: 042
     Dates: start: 20150115
  23. CYCLOPHOSPHAMID [Suspect]
     Active Substance: CYCLOPHOSPHAMIDE
     Dosage: 495 MILLIGRAM
     Route: 042
     Dates: start: 20141118
  24. SOLU?DECORTIN H [Concomitant]
     Route: 065
     Dates: start: 201411
  25. FLUDARABINE [Suspect]
     Active Substance: FLUDARABINE PHOSPHATE
     Dosage: 49.5 MILLIGRAM
     Route: 042
     Dates: start: 20141118
  26. FLUDARABINE [Suspect]
     Active Substance: FLUDARABINE PHOSPHATE
     Dosage: 50 MILLIGRAM
     Route: 042
     Dates: start: 20150114
  27. GAZYVARO [Suspect]
     Active Substance: OBINUTUZUMAB
     Dosage: 1000 MILLIGRAM
     Route: 042
     Dates: start: 20150407
  28. GAZYVARO [Suspect]
     Active Substance: OBINUTUZUMAB
     Dosage: 1000 MILLIGRAM
     Route: 042
     Dates: start: 201502
  29. GAZYVARO [Suspect]
     Active Substance: OBINUTUZUMAB
     Dosage: 1000 MILLIGRAM
     Route: 042
     Dates: start: 20141216
  30. DEKRISTOL [Concomitant]
     Active Substance: CHOLECALCIFEROL
     Dosage: 20000 INTERNATIONAL UNIT, QD
     Route: 065

REACTIONS (47)
  - Ill-defined disorder [Unknown]
  - Retinitis viral [Recovered/Resolved]
  - Drug-induced liver injury [Not Recovered/Not Resolved]
  - Cataract subcapsular [Unknown]
  - Dermatitis atopic [Unknown]
  - Gallbladder polyp [Unknown]
  - Weight decreased [Unknown]
  - Fungal infection [Unknown]
  - Pyrexia [Recovered/Resolved]
  - Bacterial disease carrier [Unknown]
  - Neutropenia [Unknown]
  - Central nervous system lesion [Not Recovered/Not Resolved]
  - Blindness unilateral [Not Recovered/Not Resolved]
  - Rectal tenesmus [Unknown]
  - Folliculitis [Unknown]
  - Nephropathy toxic [Unknown]
  - Pruritus allergic [Unknown]
  - Cough [Recovered/Resolved]
  - Varicella zoster virus infection [Recovered/Resolved]
  - Leukopenia [Unknown]
  - Drug hypersensitivity [Unknown]
  - Liver function test increased [Not Recovered/Not Resolved]
  - Diarrhoea [Recovered/Resolved]
  - Dizziness [Unknown]
  - Nausea [Unknown]
  - Epilepsy [Not Recovered/Not Resolved]
  - Respiratory failure [Unknown]
  - Colitis [Recovered/Resolved]
  - Hemiparesis [Recovering/Resolving]
  - Necrotising retinitis [Not Recovered/Not Resolved]
  - Encephalitis [Unknown]
  - Syncope [Unknown]
  - Hypersensitivity [Recovered/Resolved]
  - Large intestinal stenosis [Recovered/Resolved]
  - Basal cell carcinoma [Not Recovered/Not Resolved]
  - Pneumonia [Unknown]
  - Blepharospasm [Recovered/Resolved]
  - Abdominal pain upper [Unknown]
  - Cytopenia [Unknown]
  - Febrile neutropenia [Unknown]
  - Impulse-control disorder [Recovered/Resolved]
  - Pain [Unknown]
  - Blood pressure increased [Recovered/Resolved]
  - Abdominal pain [Unknown]
  - Myelosuppression [Unknown]
  - Toxoplasmosis [Recovered/Resolved with Sequelae]
  - Mucosal disorder [Unknown]

NARRATIVE: CASE EVENT DATE: 201411
